FAERS Safety Report 5950566-5 (Version None)
Quarter: 2008Q4

REPORT INFORMATION
  Report Type: 
  Country: None (occurrence: None)
  Receive Date: 20081112
  Receipt Date: 20081029
  Transmission Date: 20090506
  Serious: Yes (Hospitalization, Disabling, Other)
  Sender: FDA-Public Use
  Company Number: US-ELI_LILLY_AND_COMPANY-US200810007167

PATIENT
  Age: 67 Year
  Sex: Female

DRUGS (4)
  1. EVISTA [Suspect]
     Indication: BONE DISORDER
     Dosage: 60 MG, DAILY (1/D)
     Route: 065
     Dates: start: 20080401
  2. LIPITOR [Concomitant]
     Dosage: 10 MG, DAILY (1/D)
  3. LISINOPRIL [Concomitant]
     Dosage: 20 MG, UNKNOWN
     Route: 065
  4. ALLEGRA [Concomitant]
     Indication: HYPERSENSITIVITY
     Dosage: UNK, UNKNOWN
     Route: 065

REACTIONS (3)
  - BLINDNESS UNILATERAL [None]
  - OCULAR VASCULAR DISORDER [None]
  - RETINAL VASCULAR THROMBOSIS [None]
